FAERS Safety Report 17366640 (Version 2)
Quarter: 2020Q1

REPORT INFORMATION
  Report Type: Spontaneous
  Country: HK (occurrence: HK)
  Receive Date: 20200204
  Receipt Date: 20200220
  Transmission Date: 20200409
  Serious: Yes (Death, Other)
  Sender: FDA-Public Use
  Company Number: HK-BAYER-2020-019023

PATIENT
  Age: 50 Year
  Sex: Female

DRUGS (2)
  1. VITRAKVI [Suspect]
     Active Substance: LAROTRECTINIB
     Indication: THYROID CANCER STAGE IV
     Dosage: 100 MG, BID
     Dates: start: 201910, end: 201912
  2. VITRAKVI [Suspect]
     Active Substance: LAROTRECTINIB
     Indication: METASTASES TO LUNG

REACTIONS (6)
  - Lymphadenopathy [None]
  - Pleural effusion [None]
  - Thyroid cancer metastatic [None]
  - Metastases to lung [None]
  - Anaemia [None]
  - Death [Fatal]

NARRATIVE: CASE EVENT DATE: 2019
